FAERS Safety Report 23687999 (Version 1)
Quarter: 2024Q1

REPORT INFORMATION
  Report Type: Spontaneous
  Country: CN (occurrence: CN)
  Receive Date: 20240329
  Receipt Date: 20240329
  Transmission Date: 20240410
  Serious: Yes (Other)
  Sender: FDA-Public Use
  Company Number: CN-009507513-2403CHN007772

PATIENT
  Age: 72 Year
  Sex: Female
  Weight: 58 kg

DRUGS (2)
  1. JANUMET [Suspect]
     Active Substance: METFORMIN HYDROCHLORIDE\SITAGLIPTIN PHOSPHATE
     Indication: Type 2 diabetes mellitus
     Dosage: 1 TABLET, BID
     Route: 048
     Dates: start: 20231213, end: 20231216
  2. STEGLATRO [Suspect]
     Active Substance: ERTUGLIFLOZIN PIDOLATE
     Indication: Type 2 diabetes mellitus
     Dosage: 1 TABLET, QD
     Route: 048
     Dates: start: 20231213, end: 20240314

REACTIONS (2)
  - Diabetes mellitus inadequate control [Unknown]
  - Dizziness [Recovering/Resolving]

NARRATIVE: CASE EVENT DATE: 20231214
